FAERS Safety Report 8210716-7 (Version None)
Quarter: 2012Q1

REPORT INFORMATION
  Report Type: 
  Country: None (occurrence: None)
  Receive Date: 20120315
  Receipt Date: 20120307
  Transmission Date: 20120608
  Serious: Yes (Hospitalization)
  Sender: FDA-Public Use
  Company Number: US-BIOGENIDEC-2011BI045285

PATIENT
  Age: 59 Year
  Sex: Female

DRUGS (1)
  1. AVONEX [Suspect]
     Indication: MULTIPLE SCLEROSIS
     Route: 030
     Dates: start: 20050802

REACTIONS (5)
  - COELIAC DISEASE [None]
  - EATING DISORDER [None]
  - LACTOSE INTOLERANCE [None]
  - HYPERPHAGIA [None]
  - DIARRHOEA [None]
